FAERS Safety Report 11195152 (Version 3)
Quarter: 2016Q3

REPORT INFORMATION
  Report Type: Report from Study
  Country: CA (occurrence: CA)
  Receive Date: 20150617
  Receipt Date: 20160829
  Transmission Date: 20161109
  Serious: Yes (Hospitalization, Other)
  Sender: FDA-Public Use
  Company Number: CA-ROCHE-1566927

PATIENT
  Age: 63 Year
  Sex: Female

DRUGS (8)
  1. ACTEMRA [Suspect]
     Active Substance: TOCILIZUMAB
     Route: 058
     Dates: start: 20150420
  2. ACTEMRA [Suspect]
     Active Substance: TOCILIZUMAB
     Indication: RHEUMATOID ARTHRITIS
     Route: 058
     Dates: start: 20150330
  3. METHOTREXATE. [Concomitant]
     Active Substance: METHOTREXATE
  4. CYMBALTA [Concomitant]
     Active Substance: DULOXETINE HYDROCHLORIDE
  5. TELMISARTAN. [Concomitant]
     Active Substance: TELMISARTAN
  6. LYRICA [Concomitant]
     Active Substance: PREGABALIN
  7. LEFLUNOMIDE. [Concomitant]
     Active Substance: LEFLUNOMIDE
  8. FOLIC ACID. [Concomitant]
     Active Substance: FOLIC ACID

REACTIONS (17)
  - Abdominal pain [Unknown]
  - Pain in extremity [Unknown]
  - Rheumatoid arthritis [Unknown]
  - Deafness unilateral [Unknown]
  - Peripheral swelling [Unknown]
  - Hepatomegaly [Unknown]
  - Swelling [Unknown]
  - Cholelithiasis [Unknown]
  - Pancreatic disorder [Unknown]
  - Nephrolithiasis [Unknown]
  - Anxiety [Unknown]
  - Ear infection [Not Recovered/Not Resolved]
  - Pain [Unknown]
  - Drug ineffective [Unknown]
  - Headache [Unknown]
  - Rash [Unknown]
  - Viral infection [Unknown]

NARRATIVE: CASE EVENT DATE: 20150421
